FAERS Safety Report 4306936-4 (Version None)
Quarter: 2004Q1

REPORT INFORMATION
  Report Type: 
  Country: None (occurrence: None)
  Receive Date: 20040225
  Receipt Date: 20040203
  Transmission Date: 20041129
  Serious: Yes (Hospitalization)
  Sender: FDA-Public Use
  Company Number: B0300979A

PATIENT
  Age: 47 Year
  Sex: Female

DRUGS (13)
  1. VALTREX [Suspect]
     Indication: HERPES ZOSTER
     Dosage: ORAL
     Route: 048
     Dates: start: 20030522, end: 20030524
  2. EFONIDIPINE [Concomitant]
  3. ATORVASTATIN CALCIUM [Concomitant]
  4. MECOBALAMIN [Concomitant]
  5. CALCIUM CARBONATE [Concomitant]
  6. BENFOTIAMINE [Concomitant]
  7. ASCORBIC AC.+PANTHOTHENIC [Concomitant]
  8. HEMODIALYSIS [Concomitant]
  9. HUMAN INSULIN [Concomitant]
  10. VITAMEDIN [Concomitant]
  11. ASCORBIC ACID + VITAMIN E [Concomitant]
  12. ATORVASTATIN CALCIUM [Concomitant]
  13. NICARDIPINE HYDROCHLORIDE [Concomitant]

REACTIONS (10)
  - AKINESIA [None]
  - APHASIA [None]
  - DRUG LEVEL INCREASED [None]
  - ENCEPHALITIS [None]
  - FEELING ABNORMAL [None]
  - HAEMODIALYSIS [None]
  - HYPOAESTHESIA [None]
  - JOINT ANKYLOSIS [None]
  - LACK OF SPONTANEOUS SPEECH [None]
  - SENSORY DISTURBANCE [None]
